FAERS Safety Report 14259438 (Version 1)
Quarter: 2017Q4

REPORT INFORMATION
  Report Type: Report from Study
  Country: US (occurrence: US)
  Receive Date: 20171207
  Receipt Date: 20171207
  Transmission Date: 20180321
  Serious: Yes (Death)
  Sender: FDA-Public Use
  Company Number: US-BAYER-2017-230064

PATIENT
  Age: 78 Year

DRUGS (1)
  1. NEXAVAR [Suspect]
     Active Substance: SORAFENIB
     Dosage: 400 MG, QD
     Route: 048

REACTIONS (2)
  - Off label use [None]
  - Death [Fatal]

NARRATIVE: CASE EVENT DATE: 20171126
